FAERS Safety Report 11636860 (Version 1)
Quarter: 2015Q4

REPORT INFORMATION
  Report Type: Spontaneous
  Country: US (occurrence: None)
  Receive Date: 20151016
  Receipt Date: 20151016
  Transmission Date: 20160304
  Serious: Yes (Other)
  Sender: FDA-Public Use
  Company Number: US-MDT-ADR-2015-01972

PATIENT

DRUGS (1)
  1. BACLOFEN INTRATHECAL [Suspect]
     Active Substance: BACLOFEN

REACTIONS (4)
  - Gait disturbance [None]
  - Nuchal rigidity [None]
  - Cerebrovascular accident [None]
  - Dyspnoea [None]
